FAERS Safety Report 5059147-1 (Version None)
Quarter: 2006Q3

REPORT INFORMATION
  Report Type: 
  Country: None (occurrence: None)
  Receive Date: 20060718
  Receipt Date: 20060705
  Transmission Date: 20061208
  Serious: Yes (Hospitalization)
  Sender: FDA-Public Use
  Company Number: 2006PV016925

PATIENT
  Sex: Male

DRUGS (1)
  1. SYMLIN [Suspect]
     Dosage: SC
     Route: 058

REACTIONS (1)
  - ACUTE MYELOID LEUKAEMIA [None]
